FAERS Safety Report 9902919 (Version 1)
Quarter: 2014Q1

REPORT INFORMATION
  Report Type: Spontaneous
  Country: US (occurrence: US)
  Receive Date: 20140217
  Receipt Date: 20140217
  Transmission Date: 20141002
  Serious: Yes (Other)
  Sender: FDA-Public Use
  Company Number: PHHY2014US016189

PATIENT
  Age: 55 Year
  Sex: Male

DRUGS (2)
  1. 5-FLUOROURACIL [Suspect]
     Indication: COLON CANCER
  2. LEUCOVORIN [Concomitant]
     Indication: COLON CANCER

REACTIONS (3)
  - Systemic lupus erythematosus [Recovered/Resolved]
  - Rash erythematous [Recovered/Resolved]
  - Skin lesion [Recovered/Resolved]
